FAERS Safety Report 5622375-8 (Version None)
Quarter: 2008Q1

REPORT INFORMATION
  Report Type: 
  Country: None (occurrence: None)
  Receive Date: 20080211
  Receipt Date: 20080201
  Transmission Date: 20080703
  Serious: Yes (Hospitalization)
  Sender: FDA-Public Use
  Company Number: JP-PFIZER INC-2007099433

PATIENT
  Sex: Male
  Weight: 38 kg

DRUGS (6)
  1. GENOTROPIN [Suspect]
     Indication: GROWTH HORMONE DEFICIENCY
     Dosage: DAILY DOSE:1MG-FREQ:FREQUENCY:QD
     Route: 058
  2. GENOTROPIN [Suspect]
     Dosage: DAILY DOSE:.8MG
  3. GENOTROPIN [Suspect]
     Dosage: DAILY DOSE:.9MG
  4. GENOTROPIN [Suspect]
     Dosage: DAILY DOSE:1MG
  5. GENOTROPIN [Suspect]
     Dosage: DAILY DOSE:1.2MG
  6. DEPAKENE [Concomitant]
     Route: 048

REACTIONS (1)
  - MENISCUS LESION [None]
